FAERS Safety Report 6231896-9 (Version None)
Quarter: 2009Q2

REPORT INFORMATION
  Report Type: 
  Country: None (occurrence: None)
  Receive Date: 20090612
  Receipt Date: 20090605
  Transmission Date: 20091009
  Serious: Yes (Hospitalization, Other)
  Sender: FDA-Public Use
  Company Number: 2009JP001634

PATIENT
  Age: 74 Year
  Sex: Male

DRUGS (6)
  1. PROTOPIC [Suspect]
     Indication: DERMATITIS ATOPIC
     Dosage: 0.1 %, TOPICAL
     Route: 061
     Dates: start: 20020626, end: 20090321
  2. PASTARON (GLYCYRRHIZIC ACID DIPOTASSIUM, TOCOPHERYL ACETATE) LOTION [Concomitant]
  3. PROPADERM OINTMENT [Concomitant]
  4. EURAX (CROTAMITON) OINTMENT [Concomitant]
  5. PANDEL (HYDROCORTISONE PROBUTAT) LOTION [Concomitant]
  6. ATOLANT (NETICONAZOLE HYDROCHLORIDE) SOLUTION (ORAL USE) [Concomitant]

REACTIONS (1)
  - ANAPLASTIC LARGE CELL LYMPHOMA T- AND NULL-CELL TYPES [None]
